FAERS Safety Report 21445082 (Version 3)
Quarter: 2022Q4

REPORT INFORMATION
  Report Type: Report from Study
  Country: US (occurrence: US)
  Receive Date: 20221012
  Receipt Date: 20221221
  Transmission Date: 20230113
  Serious: Yes (Death, Other)
  Sender: FDA-Public Use
  Company Number: US-ABBVIE-4149726

PATIENT
  Sex: Female
  Weight: 99.79 kg

DRUGS (4)
  1. CREON [Suspect]
     Active Substance: PANCRELIPASE AMYLASE\PANCRELIPASE LIPASE\PANCRELIPASE PROTEASE
     Indication: Pancreatectomy
     Dosage: TIME INTERVAL: 0.33333333 DAYS: FOA: 36,000 UNITS CAPSULE/TAKE 4 CAPSULES BY MOUTH 3 TIMES DAILY ...
     Route: 048
     Dates: start: 2017, end: 2022
  2. MODERNA COVID-19 VACCINE [Concomitant]
     Active Substance: ELASOMERAN
     Indication: COVID-19 immunisation
     Dosage: 0121421B
     Route: 030
     Dates: start: 20211122, end: 20211122
  3. MODERNA COVID-19 VACCINE [Concomitant]
     Active Substance: ELASOMERAN
     Indication: COVID-19 immunisation
     Route: 030
     Dates: start: 20210203, end: 20210203
  4. MODERNA COVID-19 VACCINE [Concomitant]
     Active Substance: ELASOMERAN
     Indication: COVID-19 immunisation
     Route: 030
     Dates: start: 20210304, end: 20210304

REACTIONS (6)
  - Gastric cancer [Fatal]
  - Hepatic cancer [Fatal]
  - Renal cancer [Fatal]
  - Abdominal discomfort [Fatal]
  - Asthenia [Fatal]
  - Hypophagia [Fatal]

NARRATIVE: CASE EVENT DATE: 20220101
